FAERS Safety Report 7141217-5 (Version None)
Quarter: 2010Q4

REPORT INFORMATION
  Report Type: 
  Country: None (occurrence: None)
  Receive Date: 20101203
  Receipt Date: 20101203
  Transmission Date: 20110411
  Serious: Yes (Other)
  Sender: FDA-Public Use
  Company Number: None

PATIENT
  Age: 76 Year
  Sex: Male
  Weight: 136.0791 kg

DRUGS (1)
  1. DARVOCET-N 100 [Suspect]
     Indication: GOUT
     Dosage: 1 TO 2 UP TO EVERY 4HOURS (AT LEAST 2 YEARS)

REACTIONS (4)
  - ASTHENIA [None]
  - DIZZINESS [None]
  - DYSPNOEA [None]
  - PRESYNCOPE [None]
